FAERS Safety Report 5497432-X (Version None)
Quarter: 2007Q4

REPORT INFORMATION
  Report Type: 
  Country: None (occurrence: None)
  Receive Date: 20071025
  Receipt Date: 20070913
  Transmission Date: 20080405
  Serious: No
  Sender: FDA-Public Use
  Company Number: US-BRISTOL-MYERS SQUIBB COMPANY-13907910

PATIENT
  Age: 66 Year
  Sex: Female
  Weight: 77 kg

DRUGS (7)
  1. GLUCOPHAGE XR [Suspect]
     Indication: TYPE 2 DIABETES MELLITUS
     Dosage: ONCE DAILY IN DEC 2006 .INCREASED B.I.D AFTER BREAKFAST AND EVENING MEAL IN JULY 2007
     Dates: start: 20070701
  2. MOTRIN [Concomitant]
  3. PRINZIDE [Concomitant]
  4. MULTI-VITAMIN [Concomitant]
  5. VITAMIN B-50 [Concomitant]
  6. ASCORBIC ACID [Concomitant]
  7. VALIUM [Concomitant]

REACTIONS (4)
  - BLOOD CREATININE INCREASED [None]
  - BLOOD UREA INCREASED [None]
  - DRUG INEFFECTIVE [None]
  - PROTEIN TOTAL DECREASED [None]
